FAERS Safety Report 8892257 (Version 1)
Quarter: 2012Q4

REPORT INFORMATION
  Report Type: 
  Country: US (occurrence: US)
  Receive Date: 20121107
  Receipt Date: 20121107
  Transmission Date: 20130627
  Serious: No
  Sender: FDA-Public Use
  Company Number: US-AMGEN-USASP2011055479

PATIENT
  Age: 58 Year
  Sex: Female
  Weight: 71.66 kg

DRUGS (17)
  1. ENBREL [Suspect]
     Indication: PRODUCT USED FOR UNKNOWN INDICATION
     Dosage: 50 mg, qwk
     Route: 058
  2. CYMBALTA [Concomitant]
     Dosage: 30 mg, UNK
  3. XANAX [Concomitant]
     Dosage: 1 mg, UNK
  4. AMBIEN CR [Concomitant]
     Dosage: 12.5 mg, UNK
  5. ESTROGEL [Concomitant]
  6. LYRICA [Concomitant]
     Dosage: 100 mg, UNK
  7. VITAMIN C [Concomitant]
     Dosage: 1000 mg, UNK
  8. SKELAXIN [Concomitant]
     Dosage: 800 mg, UNK
  9. VITAMIN B CO ALMUS [Concomitant]
  10. ADVIL [Concomitant]
     Dosage: 200 mg, UNK
  11. OXYCODONE [Concomitant]
     Dosage: 10 mg, UNK
  12. FISH OIL [Concomitant]
  13. VITAMIN D [Concomitant]
  14. AVINZA [Concomitant]
     Dosage: 30 mg, UNK
  15. PROGESTERONE ABBOTT [Concomitant]
  16. MULTIVITAMINS [Concomitant]
  17. LYSINE [Concomitant]
     Dosage: 500 mg, UNK

REACTIONS (1)
  - Headache [Unknown]
